FAERS Safety Report 6999856-8 (Version None)
Quarter: 2010Q3

REPORT INFORMATION
  Report Type: 
  Country: None (occurrence: None)
  Receive Date: 20100920
  Receipt Date: 20071205
  Transmission Date: 20110219
  Serious: Yes (Other)
  Sender: FDA-Public Use
  Company Number: US-ASTRAZENECA-2006UW07910

PATIENT
  Age: 543 Month
  Sex: Female
  Weight: 73.9 kg

DRUGS (5)
  1. SEROQUEL [Suspect]
     Indication: DEPRESSION
     Route: 048
     Dates: start: 20000101
  2. SEROQUEL [Suspect]
     Dosage: 25-600 MG
     Route: 048
     Dates: start: 20010117
  3. CLONAZEPAM [Concomitant]
  4. EFFEXOR XR [Concomitant]
  5. LORAZEPAM [Concomitant]

REACTIONS (1)
  - PANCREATITIS [None]
